FAERS Safety Report 7997289-9 (Version None)
Quarter: 2011Q4

REPORT INFORMATION
  Report Type: 
  Country: None (occurrence: None)
  Receive Date: 20111221
  Receipt Date: 20111215
  Transmission Date: 20120403
  Serious: Yes (Hospitalization)
  Sender: FDA-Public Use
  Company Number: JP-B.I. PHARMACEUTICALS,INC./RIDGEFIELD-2011-BP-26917NB

PATIENT
  Age: 89 Year
  Sex: Female
  Weight: 57 kg

DRUGS (2)
  1. PRADAXA [Suspect]
     Indication: ATRIAL FIBRILLATION
     Dosage: 220 MG
     Route: 048
     Dates: start: 20110613, end: 20111121
  2. ANPLAG [Suspect]
     Dosage: 100 MG
     Route: 048

REACTIONS (3)
  - MELAENA [None]
  - CHEST DISCOMFORT [None]
  - GASTROENTERITIS [None]
